FAERS Safety Report 25126222 (Version 1)
Quarter: 2025Q1

REPORT INFORMATION
  Report Type: Spontaneous
  Country: US (occurrence: US)
  Receive Date: 20250326
  Receipt Date: 20250326
  Transmission Date: 20250408
  Serious: No
  Sender: GALPHARM INTERNATIONAL
  Company Number: US-PERRIGO-25US001550

PATIENT
  Age: 81 Year
  Sex: Female
  Weight: 48.98 kg

DRUGS (4)
  1. NASONEX [Suspect]
     Active Substance: MOMETASONE FUROATE
     Indication: Hypersensitivity
     Route: 045
     Dates: start: 20241219, end: 20241223
  2. NASONEX [Suspect]
     Active Substance: MOMETASONE FUROATE
     Route: 045
  3. NASONEX [Suspect]
     Active Substance: MOMETASONE FUROATE
     Route: 045
     Dates: start: 20250129, end: 20250129
  4. XARELTO [Concomitant]
     Active Substance: RIVAROXABAN
     Indication: Atrial fibrillation
     Route: 065
     Dates: start: 2022

REACTIONS (3)
  - Oropharyngeal pain [Not Recovered/Not Resolved]
  - Epistaxis [Recovered/Resolved]
  - Underdose [Unknown]

NARRATIVE: CASE EVENT DATE: 20241219
